FAERS Safety Report 5680277-5 (Version None)
Quarter: 2008Q1

REPORT INFORMATION
  Report Type: 
  Country: None (occurrence: None)
  Receive Date: 20080326
  Receipt Date: 20080317
  Transmission Date: 20080703
  Serious: Yes (Hospitalization, Other)
  Sender: FDA-Public Use
  Company Number: JP-JNJFOC-20071001761

PATIENT
  Sex: Female
  Weight: 33 kg

DRUGS (19)
  1. REMICADE [Suspect]
     Dosage: INFUSIONS 2 - 5
     Route: 042
  2. REMICADE [Suspect]
     Dosage: INFUSIONS 2 - 5
     Route: 042
  3. REMICADE [Suspect]
     Indication: RHEUMATOID ARTHRITIS
     Dosage: 7 INFUSIONS
     Route: 042
  4. LIMETHASON [Suspect]
     Indication: RHEUMATOID ARTHRITIS
     Route: 042
  5. RHEUMATREX [Suspect]
     Indication: RHEUMATOID ARTHRITIS
     Route: 048
  6. SHIOSOL [Suspect]
     Indication: RHEUMATOID ARTHRITIS
     Route: 030
  7. ISCOTIN [Suspect]
     Indication: ANTIBIOTIC PROPHYLAXIS
     Route: 048
  8. AZULFIDINE EN-TABS [Concomitant]
     Indication: RHEUMATOID ARTHRITIS
     Route: 048
  9. THEO-DUR [Concomitant]
     Indication: ASTHMA
     Route: 048
  10. CYTOTEC [Concomitant]
     Indication: PROPHYLAXIS AGAINST GASTROINTESTINAL ULCER
     Route: 048
  11. ALFAROL [Concomitant]
     Indication: OSTEOPOROSIS
     Route: 048
  12. DEPAS [Concomitant]
     Indication: INSOMNIA
     Route: 048
  13. GLYSENNID [Concomitant]
     Indication: CONSTIPATION
     Route: 048
  14. GASTER D [Concomitant]
     Indication: PROPHYLAXIS AGAINST GASTROINTESTINAL ULCER
     Route: 048
  15. KENACORT [Concomitant]
     Indication: RHEUMATOID ARTHRITIS
  16. METOLATE [Concomitant]
     Indication: RHEUMATOID ARTHRITIS
     Route: 048
  17. FOLIAMIN [Concomitant]
     Indication: VITAMIN SUPPLEMENTATION
     Route: 048
  18. OLMESARTAN MEDOXOMIL [Concomitant]
     Indication: HYPERTENSION
     Route: 048
  19. MAGLAX [Concomitant]
     Indication: HYPERTENSION
     Route: 048

REACTIONS (2)
  - PNEUMONIA [None]
  - PULMONARY TUBERCULOSIS [None]
